APPROVED DRUG PRODUCT: BACITRACIN
Active Ingredient: BACITRACIN
Strength: 500 UNITS/GM
Dosage Form/Route: OINTMENT;OPHTHALMIC
Application: A062453 | Product #001
Applicant: PHARMAFAIR INC
Approved: Mar 28, 1984 | RLD: No | RS: No | Type: DISCN